FAERS Safety Report 9495931 (Version 2)
Quarter: 2013Q3

REPORT INFORMATION
  Report Type: Report from Study
  Country: US (occurrence: US)
  Receive Date: 20130903
  Receipt Date: 20130909
  Transmission Date: 20140515
  Serious: Yes (Death)
  Sender: FDA-Public Use
  Company Number: US-ROCHE-1270112

PATIENT
  Age: 53 Year
  Sex: Male

DRUGS (4)
  1. XELODA [Suspect]
     Indication: COLORECTAL ADENOCARCINOMA
     Dosage: 14 DAYS ON, 7 DAYS OFF
     Route: 065
  2. XELODA [Suspect]
     Indication: METASTASES TO BONE
  3. XELODA [Suspect]
     Indication: METASTASES TO LIVER
  4. RADIATION THERAPY [Concomitant]
     Route: 065

REACTIONS (1)
  - Colon cancer [Fatal]
